FAERS Safety Report 6917445-8 (Version None)
Quarter: 2010Q3

REPORT INFORMATION
  Report Type: 
  Country: None (occurrence: None)
  Receive Date: 20100810
  Receipt Date: 20100729
  Transmission Date: 20110219
  Serious: Yes (Other)
  Sender: FDA-Public Use
  Company Number: PHHY2010BR20119

PATIENT
  Sex: Male

DRUGS (2)
  1. EXFORGE [Suspect]
     Dosage: 160/5 MG
  2. ACETYLSALICYLIC ACID SRT [Concomitant]

REACTIONS (2)
  - HYPERTENSION [None]
  - PARAESTHESIA [None]
